FAERS Safety Report 8729863 (Version 4)
Quarter: 2013Q1

REPORT INFORMATION
  Report Type: Spontaneous
  Country: NO (occurrence: NO)
  Receive Date: 20120817
  Receipt Date: 20130122
  Transmission Date: 20140127
  Serious: Yes (Other)
  Sender: FDA-Public Use
  Company Number: NO-UCBSA-063602

PATIENT
  Age: 30 Month
  Sex: Female

DRUGS (4)
  1. KEPPRA [Suspect]
     Indication: EPILEPSY
     Dates: start: 20120726, end: 20120807
  2. ORFIRIL LONG [Concomitant]
     Indication: EPILEPSY
     Route: 048
     Dates: start: 20120610
  3. MIDAZOLAM [Concomitant]
     Indication: STATUS EPILEPTICUS
     Dates: start: 2012
  4. PENTOTHAL-NATRIUM [Concomitant]
     Indication: STATUS EPILEPTICUS
     Dates: start: 201207

REACTIONS (1)
  - Amblyopia [Recovered/Resolved]
